FAERS Safety Report 6148058-6 (Version None)
Quarter: 2009Q2

REPORT INFORMATION
  Report Type: 
  Country: None (occurrence: None)
  Receive Date: 20090408
  Receipt Date: 20090403
  Transmission Date: 20091009
  Serious: Yes (Hospitalization)
  Sender: FDA-Public Use
  Company Number: A0777626A

PATIENT
  Age: 60 Year
  Sex: Male
  Weight: 109.1 kg

DRUGS (2)
  1. AVANDIA [Suspect]
     Dosage: 8MG PER DAY
     Route: 048
     Dates: start: 20051201, end: 20070801
  2. HUMULIN R [Concomitant]
     Dosage: 55UNIT TWICE PER DAY
     Dates: start: 20030101

REACTIONS (3)
  - CARDIAC FAILURE CONGESTIVE [None]
  - MYOCARDIAL INFARCTION [None]
  - RENAL FAILURE [None]
